FAERS Safety Report 5829434-5 (Version None)
Quarter: 2008Q3

REPORT INFORMATION
  Report Type: 
  Country: None (occurrence: None)
  Receive Date: 20080731
  Receipt Date: 20080721
  Transmission Date: 20090109
  Serious: Yes (Life-Threatening, Hospitalization)
  Sender: FDA-Public Use
  Company Number: US-ABBOTT-08P-163-0463054-00

PATIENT
  Sex: Male
  Weight: 97.61 kg

DRUGS (11)
  1. DEPAKOTE [Suspect]
     Indication: CONVULSION
     Route: 048
     Dates: start: 19881003
  2. DEPAKOTE [Suspect]
     Route: 048
     Dates: start: 20070401, end: 20070501
  3. DEPAKOTE [Suspect]
     Route: 048
     Dates: end: 20080201
  4. LAMOTRIGINE [Suspect]
     Indication: CONVULSION
     Route: 048
  5. ATENOLOL [Concomitant]
     Indication: HYPERTENSION
     Route: 048
  6. METFORMIN HCL [Concomitant]
     Indication: BLOOD GLUCOSE
     Route: 048
  7. ESOMEPRAZOLE MAGNESIUM [Concomitant]
     Indication: DRUG USE FOR UNKNOWN INDICATION
     Route: 048
  8. QUETIAPINE [Concomitant]
     Indication: DRUG USE FOR UNKNOWN INDICATION
     Route: 048
  9. LOMICTAL [Concomitant]
     Indication: CONVULSION
  10. VENLAFAXINE HCL [Concomitant]
     Indication: DEPRESSION
  11. LORAZEPAM [Concomitant]
     Indication: DRUG USE FOR UNKNOWN INDICATION

REACTIONS (15)
  - ABDOMINAL PAIN [None]
  - ABNORMAL BEHAVIOUR [None]
  - AGGRESSION [None]
  - DEPRESSION [None]
  - DIZZINESS [None]
  - DYSURIA [None]
  - HAEMORRHAGE [None]
  - HALLUCINATION [None]
  - HEADACHE [None]
  - LIVER DISORDER [None]
  - PANCREATIC DISORDER [None]
  - PATIENT RESTRAINT [None]
  - SELF INJURIOUS BEHAVIOUR [None]
  - SOMNOLENCE [None]
  - THINKING ABNORMAL [None]
